FAERS Safety Report 20842997 (Version 1)
Quarter: 2022Q2

REPORT INFORMATION
  Report Type: Spontaneous
  Country: US (occurrence: US)
  Receive Date: 20220518
  Receipt Date: 20220518
  Transmission Date: 20220721
  Serious: Yes (Other)
  Sender: FDA-Public Use
  Company Number: US-BECTON DICKINSON-US-BD-22-000169

PATIENT
  Age: 37 Year
  Sex: Female

DRUGS (2)
  1. CHLORAPREP TRIPLE SWABSTICK [Suspect]
     Active Substance: CHLORHEXIDINE GLUCONATE\ISOPROPYL ALCOHOL
     Indication: Infection prophylaxis
     Dosage: THREE SWABS
     Route: 065
  2. CHLORAPREP TRIPLE SWABSTICK [Suspect]
     Active Substance: CHLORHEXIDINE GLUCONATE\ISOPROPYL ALCOHOL
     Indication: Biopsy breast

REACTIONS (6)
  - Skin exfoliation [Recovering/Resolving]
  - Erythema [Recovering/Resolving]
  - Blister [Recovering/Resolving]
  - Pruritus [Recovering/Resolving]
  - Skin burning sensation [Recovering/Resolving]
  - Pain [Recovering/Resolving]
